FAERS Safety Report 6956230-8 (Version None)
Quarter: 2010Q3

REPORT INFORMATION
  Report Type: 
  Country: None (occurrence: None)
  Receive Date: 20100830
  Receipt Date: 20100816
  Transmission Date: 20110219
  Serious: Yes (Other)
  Sender: FDA-Public Use
  Company Number: PHHY2010DE54126

PATIENT
  Sex: Female

DRUGS (6)
  1. CGS 20267 T30748+ [Suspect]
     Indication: BREAST CANCER
     Dosage: 1 DF, QD
     Route: 048
     Dates: start: 20090826
  2. METOPROLOL SUCCINATE [Concomitant]
     Dosage: UNK
     Dates: start: 20000101
  3. DIOVAN HCT [Concomitant]
     Dosage: UNK
     Dates: start: 20000101
  4. ASPIRIN [Concomitant]
     Dosage: UNK
     Dates: start: 20010101
  5. NEXIUM [Concomitant]
     Dosage: UNK
     Dates: start: 20080101
  6. RADIATION [Concomitant]
     Dosage: UNK
     Dates: start: 20091019, end: 20091203

REACTIONS (5)
  - DIZZINESS [None]
  - HYPERHIDROSIS [None]
  - INSOMNIA [None]
  - MYELODYSPLASTIC SYNDROME [None]
  - NAUSEA [None]
